FAERS Safety Report 7471543-1 (Version None)
Quarter: 2011Q2

REPORT INFORMATION
  Report Type: 
  Country: None (occurrence: None)
  Receive Date: 20110502
  Receipt Date: 20110418
  Transmission Date: 20111010
  Serious: Yes (Other)
  Sender: FDA-Public Use
  Company Number: TPA2011A01885

PATIENT
  Age: 60 Year
  Sex: Male

DRUGS (3)
  1. FELODIPINE [Concomitant]
  2. ULORIC [Suspect]
     Indication: GOUT
     Dosage: 80 MG (80 MG, 1 IN 1 D) PER ORAL
     Route: 048
     Dates: start: 20110204, end: 20110320
  3. ENALAPRIL MALEATE [Concomitant]

REACTIONS (3)
  - SCIATICA [None]
  - PAIN [None]
  - MYALGIA [None]
